FAERS Safety Report 24990118 (Version 1)
Quarter: 2025Q1

REPORT INFORMATION
  Report Type: Spontaneous
  Country: FR (occurrence: FR)
  Receive Date: 20250220
  Receipt Date: 20250220
  Transmission Date: 20250409
  Serious: Yes (Hospitalization, Other)
  Sender: RANBAXY
  Company Number: FR-AFSSAPS-NY2024001495

PATIENT
  Age: 47 Year
  Sex: Male
  Weight: 215 kg

DRUGS (12)
  1. NOREPINEPHRINE BITARTRATE [Suspect]
     Active Substance: NOREPINEPHRINE BITARTRATE
     Indication: Hypotension
     Dosage: STARTED AT 0.8MG/H
     Route: 040
     Dates: start: 20241115, end: 20241121
  2. FUROSEMIDE [Suspect]
     Active Substance: FUROSEMIDE
     Indication: Oedema peripheral
     Dosage: 1 DOSAGE FORM, DAILY
     Route: 048
     Dates: start: 20241117, end: 20241118
  3. METHYLENE BLUE [Suspect]
     Active Substance: METHYLENE BLUE
     Indication: Toxicity to various agents
     Route: 040
     Dates: start: 20241116, end: 20241116
  4. METHYLENE BLUE [Suspect]
     Active Substance: METHYLENE BLUE
     Dosage: BOLUS OF 200MG THEN 25MG/H THEN INCREASE TO 50MG/H.
     Route: 065
     Dates: start: 20241117, end: 20241117
  5. METHYLENE BLUE [Suspect]
     Active Substance: METHYLENE BLUE
     Dosage: BOLUS OF 200MG THEN 25MG/H THEN INCREASE TO 50MG/H
     Route: 065
     Dates: start: 20241117, end: 20241117
  6. OFLOXACIN [Concomitant]
     Active Substance: OFLOXACIN
     Indication: Toxicity to various agents
     Route: 048
     Dates: start: 20241115, end: 20241115
  7. COVERAM [Concomitant]
     Active Substance: AMLODIPINE\PERINDOPRIL
     Indication: Toxicity to various agents
     Route: 048
     Dates: start: 20241115, end: 20241115
  8. SOYBEAN OIL [Concomitant]
     Active Substance: SOYBEAN OIL
     Indication: Toxicity to various agents
     Route: 040
     Dates: start: 20241117, end: 20241117
  9. CALCIUM [Concomitant]
     Active Substance: CALCIUM
     Indication: Hypocalcaemia
     Route: 040
     Dates: start: 20241115, end: 20241117
  10. INSULIN NOS [Concomitant]
     Active Substance: INSULIN NOS
     Indication: Hyperglycaemia
     Dosage: 50 INTERNATIONAL UNIT, Q1H
     Route: 040
     Dates: start: 20241115, end: 20241120
  11. ARGIPRESSIN [Concomitant]
     Active Substance: ARGIPRESSIN
     Indication: Hypotension
     Route: 040
     Dates: start: 20241115, end: 20241120
  12. BUSPIRONE [Concomitant]
     Active Substance: BUSPIRONE HYDROCHLORIDE
     Indication: Anxiety disorder
     Dosage: 5 MILLIGRAM, DAILY
     Route: 048

REACTIONS (2)
  - Haemolytic anaemia [Not Recovered/Not Resolved]
  - Thrombocytopenia [Not Recovered/Not Resolved]

NARRATIVE: CASE EVENT DATE: 20241117
